FAERS Safety Report 7008956-8 (Version None)
Quarter: 2010Q3

REPORT INFORMATION
  Report Type: 
  Country: None (occurrence: None)
  Receive Date: 20100923
  Receipt Date: 20100915
  Transmission Date: 20110219
  Serious: Yes (Hospitalization, Other)
  Sender: FDA-Public Use
  Company Number: PHFR2010GB00503

PATIENT
  Sex: Female

DRUGS (8)
  1. CLOZARIL [Suspect]
     Indication: SCHIZOPHRENIA
     Dosage: UNK
     Dates: start: 19940210, end: 20100504
  2. OLANZAPINE [Suspect]
     Dosage: UNK
     Dates: start: 20100101
  3. OLANZAPINE [Suspect]
     Dosage: 20 MG, UNK
  4. OLANZAPINE [Suspect]
     Dosage: 25 MG, UNK
     Dates: start: 20100101
  5. AMISULPRIDE [Suspect]
  6. HYOSCINE [Concomitant]
  7. FERROUS FUMARATE [Concomitant]
     Indication: ANAEMIA
  8. HYDROXOCOBALAMIN [Concomitant]
     Indication: ANAEMIA
     Dosage: UNK

REACTIONS (16)
  - AGITATION [None]
  - BLOOD ALCOHOL INCREASED [None]
  - BLOOD PROLACTIN INCREASED [None]
  - DIARRHOEA [None]
  - DRY MOUTH [None]
  - EATING DISORDER SYMPTOM [None]
  - HALLUCINATION, AUDITORY [None]
  - HEAD BANGING [None]
  - MENTAL IMPAIRMENT [None]
  - NEGATIVE THOUGHTS [None]
  - NEUTROPHIL COUNT DECREASED [None]
  - OVERDOSE [None]
  - SLEEP DISORDER [None]
  - TOBACCO USER [None]
  - TREATMENT NONCOMPLIANCE [None]
  - WHITE BLOOD CELL COUNT DECREASED [None]
